FAERS Safety Report 5738667-8 (Version None)
Quarter: 2008Q2

REPORT INFORMATION
  Report Type: 
  Country: None (occurrence: None)
  Receive Date: 20080513
  Receipt Date: 20080513
  Transmission Date: 20081010
  Serious: No
  Sender: FDA-Public Use
  Company Number: None

PATIENT

DRUGS (1)
  1. SINGULAIR [Suspect]

REACTIONS (18)
  - ABNORMAL BEHAVIOUR [None]
  - ADENOIDAL HYPERTROPHY [None]
  - AGGRESSION [None]
  - ANGER [None]
  - CONDITION AGGRAVATED [None]
  - DEPRESSION [None]
  - ENURESIS [None]
  - IMPATIENCE [None]
  - MOOD SWINGS [None]
  - NIGHTMARE [None]
  - PAIN IN EXTREMITY [None]
  - REBOUND EFFECT [None]
  - SEASONAL ALLERGY [None]
  - SINUS DISORDER [None]
  - SINUSITIS [None]
  - SLEEP DISORDER [None]
  - SLEEP TERROR [None]
  - UPPER RESPIRATORY TRACT INFECTION [None]
